FAERS Safety Report 21838248 (Version 1)
Quarter: 2023Q1

REPORT INFORMATION
  Report Type: Spontaneous
  Country: US (occurrence: None)
  Receive Date: 20230107
  Receipt Date: 20230107
  Transmission Date: 20230418
  Serious: Yes (Disabling)
  Sender: FDA-Public Use
  Company Number: None

PATIENT
  Age: 57 Year
  Sex: Male
  Weight: 98 kg

DRUGS (15)
  1. TRELEGY ELLIPTA [Suspect]
     Active Substance: FLUTICASONE FUROATE\UMECLIDINIUM BROMIDE\VILANTEROL TRIFENATATE
  2. NORVASC [Concomitant]
     Active Substance: AMLODIPINE BESYLATE
  3. GEMFIBROZIL [Concomitant]
     Active Substance: GEMFIBROZIL
  4. KCI [Concomitant]
  5. Levoceterizine [Concomitant]
  6. AMILORIDE [Concomitant]
     Active Substance: AMILORIDE
  7. CLONIDINE [Concomitant]
     Active Substance: CLONIDINE
  8. BYSTOLIC [Concomitant]
     Active Substance: NEBIVOLOL HYDROCHLORIDE
  9. TAMSULOSIN [Concomitant]
     Active Substance: TAMSULOSIN
  10. VITAMINS [Concomitant]
     Active Substance: VITAMINS
  11. VITAMIN D3 [Concomitant]
     Active Substance: CHOLECALCIFEROL
  12. PHYSILLIUM HUSK [Concomitant]
  13. Tumeric w/black pepper capsules [Concomitant]
  14. PEPCID [Concomitant]
     Active Substance: FAMOTIDINE
  15. GAVISCON [Concomitant]
     Active Substance: ALUMINUM HYDROXIDE\MAGNESIUM CARBONATE

REACTIONS (1)
  - Cataract [None]

NARRATIVE: CASE EVENT DATE: 20220301
